FAERS Safety Report 18416988 (Version 2)
Quarter: 2020Q4

REPORT INFORMATION
  Report Type: Spontaneous
  Country: US (occurrence: US)
  Receive Date: 20201022
  Receipt Date: 20201104
  Transmission Date: 20210114
  Serious: Yes (Hospitalization, Other)
  Sender: FDA-Public Use
  Company Number: US-PFIZER INC-2020407947

PATIENT
  Age: 81 Year
  Sex: Female
  Weight: 50.35 kg

DRUGS (1)
  1. METOPROLOL TARTRATE. [Suspect]
     Active Substance: METOPROLOL TARTRATE
     Dosage: 50 MG, 2X/DAY

REACTIONS (2)
  - Bradycardia [Unknown]
  - Heart rate decreased [Unknown]
